FAERS Safety Report 4281084-0 (Version None)
Quarter: 2004Q1

REPORT INFORMATION
  Report Type: 
  Country: None (occurrence: None)
  Receive Date: 20040123
  Receipt Date: 20030130
  Transmission Date: 20041129
  Serious: Yes (Other)
  Sender: FDA-Public Use
  Company Number: HQWYE138303FEB03

PATIENT
  Age: 28 Year
  Sex: Female
  Weight: 41 kg

DRUGS (1)
  1. CORDARONE [Suspect]
     Indication: CARDIAC PACEMAKER INSERTION
     Dosage: 200 MG 2X PER 1 DAY, ORAL
     Route: 048

REACTIONS (1)
  - THROMBOCYTOPENIA [None]
